FAERS Safety Report 13534238 (Version 1)
Quarter: 2017Q2

REPORT INFORMATION
  Report Type: Spontaneous
  Country: GB (occurrence: GB)
  Receive Date: 20170510
  Receipt Date: 20170510
  Transmission Date: 20170830
  Serious: Yes (Hospitalization)
  Sender: FDA-Public Use
  Company Number: GB-MYLANLABS-2017M1028342

PATIENT

DRUGS (1)
  1. IBUPROFEN. [Suspect]
     Active Substance: IBUPROFEN
     Dates: start: 20170422

REACTIONS (2)
  - Dyspnoea [Recovered/Resolved with Sequelae]
  - Swelling [Recovered/Resolved with Sequelae]

NARRATIVE: CASE EVENT DATE: 20170422
